FAERS Safety Report 22358365 (Version 1)
Quarter: 2023Q2

REPORT INFORMATION
  Report Type: Report from Study
  Country: US (occurrence: US)
  Receive Date: 20230524
  Receipt Date: 20230524
  Transmission Date: 20230721
  Serious: Yes (Hospitalization, Other)
  Sender: FDA-Public Use
  Company Number: US-JNJFOC-20230542112

PATIENT
  Age: 51 Year
  Sex: Female

DRUGS (3)
  1. TREMFYA [Suspect]
     Active Substance: GUSELKUMAB
     Indication: Product used for unknown indication
     Dosage: AT WEEK 0, WEEK 4 AND EVERY 8 WEEKS THEREAFTER
     Route: 065
     Dates: start: 20230106
  2. TREMFYA [Suspect]
     Active Substance: GUSELKUMAB
  3. TREMFYA [Suspect]
     Active Substance: GUSELKUMAB

REACTIONS (6)
  - Pneumonia parainfluenzae viral [Unknown]
  - Ankle fracture [Unknown]
  - Fall [Unknown]
  - Fungal skin infection [Unknown]
  - Intervertebral disc protrusion [Unknown]
  - Vision blurred [Unknown]
